FAERS Safety Report 19186445 (Version 2)
Quarter: 2021Q2

REPORT INFORMATION
  Report Type: Spontaneous
  Country: US (occurrence: US)
  Receive Date: 20210427
  Receipt Date: 20210513
  Transmission Date: 20210717
  Serious: No
  Sender: FDA-Public Use
  Company Number: US-PFIZER INC-2021353334

PATIENT
  Age: 65 Year
  Sex: Female

DRUGS (1)
  1. ESTRING [Suspect]
     Active Substance: ESTRADIOL
     Indication: RADIOTHERAPY
     Dosage: UNK
     Dates: start: 2008

REACTIONS (4)
  - Vulvovaginal discomfort [Unknown]
  - Feeling abnormal [Unknown]
  - Vulvovaginal dryness [Unknown]
  - Off label use [Unknown]
